FAERS Safety Report 10480590 (Version 1)
Quarter: 2014Q3

REPORT INFORMATION
  Report Type: Spontaneous
  Country: GB (occurrence: None)
  Receive Date: 20140925
  Receipt Date: 20140925
  Transmission Date: 20150326
  Serious: Yes (Other)
  Sender: FDA-Public Use
  Company Number: KAD201409-001105

PATIENT
  Age: 50 Year
  Sex: Male
  Weight: 82 kg

DRUGS (3)
  1. RIBAVIRIN (RIBAVIRIN) [Suspect]
     Active Substance: RIBAVIRIN
     Indication: HEPATITIS C
     Route: 048
     Dates: start: 20130124, end: 201312
  2. PEGASYS [Suspect]
     Active Substance: PEGINTERFERON ALFA-2A
     Indication: HEPATITIS C
     Dates: start: 20130124, end: 201312
  3. VICTRELIS [Suspect]
     Active Substance: BOCEPREVIR
     Indication: HEPATITIS C
     Dosage: 800 MG THREE TIMES A DAY (2.4 G DAILY)
     Dates: start: 20130227, end: 20130523

REACTIONS (2)
  - Drug eruption [None]
  - Photosensitivity reaction [None]

NARRATIVE: CASE EVENT DATE: 20130523
